FAERS Safety Report 4951619-0 (Version None)
Quarter: 2006Q1

REPORT INFORMATION
  Report Type: 
  Country: None (occurrence: None)
  Receive Date: 20060317
  Receipt Date: 20060306
  Transmission Date: 20060701
  Serious: Yes (Other)
  Sender: FDA-Public Use
  Company Number: 2005171425

PATIENT
  Age: 18 Year
  Sex: Male
  Weight: 76.6579 kg

DRUGS (3)
  1. ZMAX [Suspect]
     Indication: PHARYNGITIS
     Dosage: (2 GRAM, ONCE)
  2. ZYRTEC [Concomitant]
  3. NASAL SALINE (SODIUM CHLORIDE) [Concomitant]

REACTIONS (10)
  - DRUG INEFFECTIVE [None]
  - FUSOBACTERIUM INFECTION [None]
  - HEPATIC FAILURE [None]
  - INFECTION [None]
  - JUGULAR VEIN THROMBOSIS [None]
  - NECROBACILLOSIS [None]
  - RENAL FAILURE ACUTE [None]
  - SEPTIC SHOCK [None]
  - THROMBOCYTOPENIA [None]
  - THROMBOSIS [None]
